FAERS Safety Report 6630799-5 (Version None)
Quarter: 2010Q1

REPORT INFORMATION
  Report Type: 
  Country: None (occurrence: None)
  Receive Date: 20100311
  Receipt Date: 20100304
  Transmission Date: 20100710
  Serious: Yes (Other)
  Sender: FDA-Public Use
  Company Number: US-BAXTER-2010BH005620

PATIENT
  Sex: Male

DRUGS (3)
  1. DIANEAL [Suspect]
     Indication: FLUID OVERLOAD
     Route: 033
     Dates: start: 20100101
  2. DIANEAL [Suspect]
     Route: 033
     Dates: start: 20100101
  3. INSULIN [Concomitant]
     Indication: TYPE 2 DIABETES MELLITUS
     Route: 058
     Dates: end: 20100201

REACTIONS (1)
  - BLOOD GLUCOSE DECREASED [None]
